FAERS Safety Report 4428789-6 (Version None)
Quarter: 2004Q3

REPORT INFORMATION
  Report Type: 
  Country: None (occurrence: None)
  Receive Date: 20040818
  Receipt Date: 20040806
  Transmission Date: 20050211
  Serious: Yes (Hospitalization)
  Sender: FDA-Public Use
  Company Number: JP-JNJFOC-20040607188

PATIENT
  Sex: Female

DRUGS (9)
  1. RISPERDAL [Suspect]
     Route: 049
     Dates: start: 20040526, end: 20040619
  2. HALOPERIDOL [Suspect]
     Route: 049
  3. HALOPERIDOL [Suspect]
     Route: 049
  4. HALOPERIDOL [Suspect]
     Dosage: IN APR-2004 THE DOSE OF HALOPERIDOL WAS INCREASED.
     Route: 049
  5. HALOPERIDOL [Suspect]
     Indication: DRUG USE FOR UNKNOWN INDICATION
     Dosage: ON 23-JAN-04 ORAL ADMIN OF HALOPERIDOL WAS INITIATED. SUBSEQUENTLY THE DOSE WAS GRADUALLY DECREASED.
     Route: 049
  6. PREDNISOLONE [Suspect]
     Indication: PEMPHIGOID
     Route: 049
     Dates: start: 20040108, end: 20040624
  7. PROMETHAZINE HCL [Concomitant]
     Indication: PARKINSONISM
     Route: 049
  8. TRIAZOLAM [Concomitant]
     Indication: INSOMNIA
     Route: 049
  9. LORMETAZEPAM [Concomitant]
     Indication: INSOMNIA
     Route: 049

REACTIONS (6)
  - ANXIETY [None]
  - DERMATITIS EXFOLIATIVE [None]
  - DRUG INTERACTION [None]
  - PARKINSON'S DISEASE [None]
  - PEMPHIGOID [None]
  - THROMBOCYTOPENIA [None]
